FAERS Safety Report 6533804-X (Version None)
Quarter: 2010Q1

REPORT INFORMATION
  Report Type: 
  Country: None (occurrence: None)
  Receive Date: 20100111
  Receipt Date: 20090123
  Transmission Date: 20100710
  Serious: No
  Sender: FDA-Public Use
  Company Number: US-ABBOTT-09P-163-0499922-00

PATIENT
  Sex: Female
  Weight: 83.082 kg

DRUGS (6)
  1. VICODIN [Suspect]
     Indication: DRUG USE FOR UNKNOWN INDICATION
     Route: 048
  2. VICODIN [Suspect]
     Dates: start: 20081101
  3. XYREM [Suspect]
     Indication: NARCOLEPSY
     Route: 048
     Dates: start: 20081001
  4. AMPHETAMINE AND DEXTROAMPHETAMINE SALTS [Suspect]
     Indication: NARCOLEPSY
     Route: 048
  5. VENLAFAXINE HYDROCHLORIDE [Concomitant]
     Indication: DEPRESSION
     Dates: start: 20081001
  6. TERBINAFINE [Concomitant]
     Indication: PAIN IN EXTREMITY
     Dates: start: 20081001

REACTIONS (2)
  - FATIGUE [None]
  - SOMNOLENCE [None]
